FAERS Safety Report 8127226-8 (Version None)
Quarter: 2012Q1

REPORT INFORMATION
  Report Type: 
  Country: None (occurrence: None)
  Receive Date: 20120210
  Receipt Date: 20120208
  Transmission Date: 20120608
  Serious: Yes (Other)
  Sender: FDA-Public Use
  Company Number: VE-PFIZER INC-2012034592

PATIENT
  Sex: Female

DRUGS (1)
  1. CADUET [Suspect]
     Dosage: UNK

REACTIONS (3)
  - PAIN IN EXTREMITY [None]
  - FEELING ABNORMAL [None]
  - DYSSTASIA [None]
